FAERS Safety Report 16063088 (Version 1)
Quarter: 2019Q1

REPORT INFORMATION
  Report Type: Report from Study
  Country: IT (occurrence: IT)
  Receive Date: 20190312
  Receipt Date: 20190312
  Transmission Date: 20190418
  Serious: Yes (Other)
  Sender: FDA-Public Use
  Company Number: IT-MYLANLABS-2019M1022100

PATIENT
  Age: 54 Year
  Sex: Female

DRUGS (4)
  1. TALOFEN [Concomitant]
     Active Substance: PROMAZINE HYDROCHLORIDE
     Indication: PSYCHOMOTOR HYPERACTIVITY
     Dosage: 15 GTT DROPS
     Route: 048
     Dates: start: 20100101
  2. DEURSIL [Concomitant]
     Active Substance: URSODIOL
     Indication: CHOLECYSTITIS ACUTE
     Dosage: 1 DOSAGE FORM
     Route: 048
     Dates: start: 20100101
  3. KCL-RETARD [Concomitant]
     Active Substance: POTASSIUM CHLORIDE
     Dosage: 2 DOSAGE FORM
     Route: 048
     Dates: start: 20100101
  4. FLURAZEPAM [Suspect]
     Active Substance: FLURAZEPAM\FLURAZEPAM HYDROCHLORIDE
     Indication: INSOMNIA
     Dosage: 30 MILLIGRAM, TOTAL
     Route: 048
     Dates: start: 20180805, end: 20180805

REACTIONS (3)
  - Sopor [Recovered/Resolved]
  - Miosis [Recovered/Resolved]
  - Bradypnoea [Recovered/Resolved]

NARRATIVE: CASE EVENT DATE: 20180805
